FAERS Safety Report 5140550-6 (Version None)
Quarter: 2006Q4

REPORT INFORMATION
  Report Type: 
  Country: None (occurrence: None)
  Receive Date: 20061025
  Receipt Date: 20061009
  Transmission Date: 20070319
  Serious: Yes (Other)
  Sender: FDA-Public Use
  Company Number: S06-AUT-04384-01

PATIENT
  Age: 35 Year
  Sex: Female

DRUGS (10)
  1. CIPRALEX (ESCITALOPRAM) [Suspect]
     Indication: MAJOR DEPRESSION
     Dosage: 20 MG QD PO
     Route: 048
     Dates: start: 20060911, end: 20060927
  2. CIPRALEX (ESCITALOPRAM) [Suspect]
     Indication: MAJOR DEPRESSION
     Dosage: 10 MG QD PO
     Route: 048
     Dates: start: 20060825, end: 20060910
  3. SOLIAN (AMISULPRIDE) [Suspect]
     Dosage: 200 MG DAILY PO
     Route: 048
     Dates: start: 20060912, end: 20060913
  4. SOLIAN (AMISULPRIDE) [Suspect]
     Dosage: 400 MG DAILY PO
     Route: 048
     Dates: start: 20060913, end: 20060914
  5. SOLIAN (AMISULPRIDE) [Suspect]
     Dosage: 800 MG DAILY PO
     Route: 048
     Dates: start: 20060915, end: 20060917
  6. OXAZEPAM [Concomitant]
  7. MIRTARON 30 [Concomitant]
  8. ZYRTEC [Concomitant]
  9. EFFECTIN (BITOLTEROL MESILATE) [Concomitant]
  10. ZYPREXA [Concomitant]

REACTIONS (2)
  - MUSCULAR WEAKNESS [None]
  - PARKINSONISM [None]
